FAERS Safety Report 23123275 (Version 1)
Quarter: 2023Q4

REPORT INFORMATION
  Report Type: Spontaneous
  Country: US (occurrence: US)
  Receive Date: 20231030
  Receipt Date: 20231030
  Transmission Date: 20240109
  Serious: Yes (Other)
  Sender: FDA-Public Use
  Company Number: US-BAYER-2023A151548

PATIENT
  Age: 70 Year
  Sex: Male

DRUGS (1)
  1. RIVAROXABAN [Suspect]
     Active Substance: RIVAROXABAN
     Indication: Product used for unknown indication
     Dosage: UNK
     Route: 048

REACTIONS (7)
  - Upper gastrointestinal haemorrhage [Unknown]
  - Gastric pneumatosis [Unknown]
  - Thrombosis [Unknown]
  - Gastric cancer [Unknown]
  - Gastric ulcer [Unknown]
  - Pneumatosis intestinalis [Unknown]
  - Amyloidosis [Unknown]
